FAERS Safety Report 5792146-0 (Version None)
Quarter: 2008Q2

REPORT INFORMATION
  Report Type: 
  Country: None (occurrence: None)
  Receive Date: 20080626
  Receipt Date: 20080613
  Transmission Date: 20081010
  Serious: Yes (Hospitalization)
  Sender: FDA-Public Use
  Company Number: FR-ELI_LILLY_AND_COMPANY-FR200806003245

PATIENT
  Age: 83 Year
  Sex: Male

DRUGS (5)
  1. UMULINE [Suspect]
     Indication: TYPE 1 DIABETES MELLITUS
     Dosage: UNK, UNKNOWN
     Route: 058
  2. LASIX [Concomitant]
     Indication: RENAL FAILURE
     Dosage: UNK, UNKNOWN
     Route: 048
     Dates: end: 20080311
  3. ATACAND [Concomitant]
     Dosage: UNK, UNKNOWN
     Route: 048
  4. PLAVIX [Concomitant]
     Indication: PROPHYLAXIS
     Dosage: UNK, UNKNOWN
     Route: 048
  5. HYPERIUM [Concomitant]
     Dosage: UNK, UNKNOWN
     Route: 048

REACTIONS (1)
  - DRUG RASH WITH EOSINOPHILIA AND SYSTEMIC SYMPTOMS [None]
